FAERS Safety Report 25762203 (Version 1)
Quarter: 2025Q3

REPORT INFORMATION
  Report Type: Report from Study
  Country: CO (occurrence: CO)
  Receive Date: 20250904
  Receipt Date: 20250904
  Transmission Date: 20251021
  Serious: Yes (Hospitalization)
  Sender: ABBVIE
  Company Number: CO-ABBVIE-6442797

PATIENT
  Age: 79 Year
  Sex: Female

DRUGS (12)
  1. VENETOCLAX [Suspect]
     Active Substance: VENETOCLAX
     Indication: Acute myeloid leukaemia
     Dosage: INITIAL?CYCLE 1
     Route: 048
     Dates: start: 20240813, end: 20240902
  2. VENETOCLAX [Suspect]
     Active Substance: VENETOCLAX
     Indication: Acute myeloid leukaemia
     Dosage: MAINTENANCE DOSE?CYCLE 2
     Route: 048
     Dates: start: 20240923, end: 20241013
  3. VENETOCLAX [Suspect]
     Active Substance: VENETOCLAX
     Indication: Acute myeloid leukaemia
     Dosage: MAINTENANCE DOSE?CYCLE 3
     Route: 048
     Dates: start: 20241118, end: 20241208
  4. VENETOCLAX [Suspect]
     Active Substance: VENETOCLAX
     Indication: Acute myeloid leukaemia
     Dosage: MAINTENANCE DOSE?CYCLE 4
     Route: 048
     Dates: start: 20250128, end: 20250205
  5. AZACITIDINE [Suspect]
     Active Substance: AZACITIDINE
     Indication: Acute myeloid leukaemia
     Dosage: INITIAL?CYCLE 1
     Route: 058
     Dates: start: 20240813, end: 20240819
  6. AZACITIDINE [Suspect]
     Active Substance: AZACITIDINE
     Indication: Acute myeloid leukaemia
     Dosage: MAINTENANCE DOSE?CYCLE 2
     Route: 058
     Dates: start: 20240923, end: 20240929
  7. AZACITIDINE [Suspect]
     Active Substance: AZACITIDINE
     Indication: Acute myeloid leukaemia
     Dosage: MAINTENANCE DOSE?CYCLE 3
     Route: 058
     Dates: start: 20241118, end: 20241126
  8. AZACITIDINE [Suspect]
     Active Substance: AZACITIDINE
     Indication: Acute myeloid leukaemia
     Dosage: MAINTENANCE DOSE?CYCLE 4
     Route: 058
     Dates: start: 20250128, end: 20250205
  9. ENOXAPARIN [Concomitant]
     Active Substance: ENOXAPARIN
     Indication: Thrombosis prophylaxis
     Route: 058
     Dates: start: 20250303, end: 20250421
  10. PEGFILGRASTIM [Concomitant]
     Active Substance: PEGFILGRASTIM
     Indication: Acute myeloid leukaemia
     Route: 058
     Dates: start: 20250304, end: 20250304
  11. Acetaminophen; Codeine [Concomitant]
     Indication: Rheumatoid arthritis
     Route: 048
     Dates: start: 20250322
  12. FLUCONAZOLE [Concomitant]
     Active Substance: FLUCONAZOLE
     Indication: Antifungal prophylaxis
     Dosage: INITIAL
     Dates: start: 20241216, end: 20250318

REACTIONS (2)
  - Streptococcal bacteraemia [Recovered/Resolved]
  - Hip fracture [Recovered/Resolved]

NARRATIVE: CASE EVENT DATE: 20250303
